FAERS Safety Report 6301652-1 (Version None)
Quarter: 2009Q3

REPORT INFORMATION
  Report Type: 
  Country: None (occurrence: None)
  Receive Date: 20090807
  Receipt Date: 20090728
  Transmission Date: 20100115
  Serious: Yes (Other)
  Sender: FDA-Public Use
  Company Number: PHHY2009US31843

PATIENT
  Age: 76 Year
  Sex: Male

DRUGS (3)
  1. PROLEUKIN [Suspect]
     Indication: METASTATIC RENAL CELL CARCINOMA
     Dosage: 18 X10^6 IU/M^2 CONTINUOUS INFUSION FOR 120 HOURS, ON DAYS 1 AND 14
  2. INTERFERON ALFA-2A [Suspect]
     Indication: METASTATIC RENAL CELL CARCINOMA
     Dosage: 6 MIU EVERY OTHER DAY
     Route: 058
  3. BEVACIZUMAB [Concomitant]
     Indication: METASTATIC RENAL CELL CARCINOMA

REACTIONS (8)
  - ACTIVATED PARTIAL THROMBOPLASTIN TIME ABNORMAL [None]
  - BLOOD CREATININE ABNORMAL [None]
  - HYPOCALCAEMIA [None]
  - HYPOTENSION [None]
  - HYPOXIA [None]
  - INTERNATIONAL NORMALISED RATIO ABNORMAL [None]
  - PRURITUS [None]
  - RASH [None]
